FAERS Safety Report 8490246-8 (Version None)
Quarter: 2012Q3

REPORT INFORMATION
  Report Type: 
  Country: None (occurrence: None)
  Receive Date: 20120705
  Receipt Date: 20120127
  Transmission Date: 20120928
  Serious: No
  Sender: FDA-Public Use
  Company Number: US-BAUSCH-2012BL000582

PATIENT
  Age: 63 Year
  Sex: Female

DRUGS (4)
  1. OPCON-A [Suspect]
     Indication: EYE IRRITATION
     Route: 047
     Dates: start: 20110101
  2. OPCON-A [Suspect]
     Route: 047
     Dates: start: 20120127, end: 20120127
  3. VISINE EYE DROPS [Concomitant]
  4. PROPYLENE GLYCOL [Concomitant]

REACTIONS (1)
  - MYDRIASIS [None]
